FAERS Safety Report 9034699 (Version 1)
Quarter: 2013Q1

REPORT INFORMATION
  Report Type: Spontaneous
  Country: US (occurrence: US)
  Receive Date: 20130128
  Receipt Date: 20130128
  Transmission Date: 20140127
  Serious: Yes (Death)
  Sender: FDA-Public Use
  Company Number: US-GLAXOSMITHKLINE-B0859092A

PATIENT
  Age: 37 Year
  Sex: Male

DRUGS (5)
  1. METHADONE [Suspect]
     Route: 048
  2. CAFFEINE [Suspect]
     Route: 048
  3. LORAZEPAM [Suspect]
     Route: 048
  4. CITALOPRAM [Suspect]
     Route: 048
  5. COTININE [Suspect]
     Route: 048

REACTIONS (2)
  - Completed suicide [Fatal]
  - Cardio-respiratory arrest [Unknown]
